FAERS Safety Report 24779653 (Version 1)
Quarter: 2024Q4

REPORT INFORMATION
  Report Type: Spontaneous
  Country: US (occurrence: US)
  Receive Date: 20241226
  Receipt Date: 20241226
  Transmission Date: 20250115
  Serious: No
  Sender: SANDOZ
  Company Number: US-SANDOZ-SDZ2024US104299

PATIENT
  Age: 71 Year
  Sex: Female

DRUGS (17)
  1. AZITHROMYCIN [Suspect]
     Active Substance: AZITHROMYCIN
     Indication: Mycobacterium avium complex infection
     Dosage: 500 MG, QD
     Route: 048
  2. ETHAMBUTOL [Suspect]
     Active Substance: ETHAMBUTOL HYDROCHLORIDE
     Indication: Mycobacterium avium complex infection
     Dosage: 400 MG, BID
     Route: 048
  3. RIFABUTIN [Suspect]
     Active Substance: RIFABUTIN
     Indication: Mycobacterium avium complex infection
     Dosage: 300 MG M/W/F
     Route: 048
  4. RIFAMPIN [Suspect]
     Active Substance: RIFAMPIN
     Indication: Mycobacterium avium complex infection
     Dosage: UNK UNK, QD
     Route: 048
  5. RIFAMYCIN [Suspect]
     Active Substance: RIFAMYCIN
     Indication: Mycobacterium avium complex infection
     Dosage: UNK
     Route: 065
  6. ALDARA [Concomitant]
     Active Substance: IMIQUIMOD
     Indication: Product used for unknown indication
     Dosage: UNK, QD, APPLY 5 TIMES PER WEEK TO AFFECTED SKIN QHS X 6 WEEKS. WASH HANDS AFTER APPLICATION.
     Route: 061
     Dates: start: 20240607
  7. DITROPAN [Concomitant]
     Active Substance: OXYBUTYNIN CHLORIDE
     Indication: Product used for unknown indication
     Dosage: 5 MG, QD
     Route: 048
     Dates: start: 20231229
  8. IRON [Concomitant]
     Active Substance: IRON
     Indication: Product used for unknown indication
     Dosage: 65 MG, QOD, TAKE 1 TABLET BY MOUTH EVERY OTHER DAY
     Route: 048
     Dates: start: 20231119
  9. LEVOXYL [Concomitant]
     Active Substance: LEVOTHYROXINE SODIUM
     Indication: Product used for unknown indication
     Dosage: UNK, QD, 50 MCG ORAL TABLET, TAKE 1 TABLET BY MOUTH DAILY ON AN EMPTY STOMACH
     Route: 048
     Dates: start: 20240716
  10. MYAMBUTOL [Concomitant]
     Active Substance: ETHAMBUTOL HYDROCHLORIDE
     Indication: Product used for unknown indication
     Dosage: 400 MG, QD, TAKE 2 TABLETS BY MOUTH DAILY (OKAY TO TAKE 1 TABLET TWICE A DAY IF GL INTOLERANCE)
     Route: 048
     Dates: start: 20241125
  11. MYCOBUTIN [Concomitant]
     Active Substance: RIFABUTIN
     Indication: Product used for unknown indication
     Dosage: 150 MG, TAKE 2 CAPSULES BY MOUTH EVERY MONDAY, WEDNESDAY AND FRIDAY
     Route: 048
     Dates: start: 20241025
  12. PEPCID [Concomitant]
     Active Substance: FAMOTIDINE
     Indication: Product used for unknown indication
     Dosage: 40 MG, QD, TAKE 1 TABLET BY MOUTH DAILY BEFORE A MEAL
     Route: 048
     Dates: start: 20240919
  13. PROAIR HFA [Concomitant]
     Active Substance: ALBUTEROL SULFATE
     Indication: Wheezing
     Dosage: UNK, TAKE 2 PUFFS EVERY 4 HOURS AS NEEDED
     Route: 055
     Dates: start: 20240124
  14. VITAMIN B12 [Concomitant]
     Active Substance: CYANOCOBALAMIN
     Indication: Product used for unknown indication
     Dosage: UNK 1000 MCG, QD
     Route: 048
     Dates: start: 20231119
  15. YUVAFEM [Concomitant]
     Active Substance: ESTRADIOL HEMIHYDRATE
     Indication: Product used for unknown indication
     Dosage: UNK UNK, QOD, UNK, 10 MCG VAGL TABLET
     Route: 067
     Dates: start: 20240528
  16. ZITHROMAX [Concomitant]
     Active Substance: AZITHROMYCIN DIHYDRATE
     Indication: Product used for unknown indication
     Dosage: 500 MG, QD
     Route: 048
     Dates: start: 20241125
  17. ZOFRAN [Concomitant]
     Active Substance: ONDANSETRON HYDROCHLORIDE
     Indication: Product used for unknown indication
     Dosage: 4 MG, Q8H, TAKE 1 TABLET BY MOUTH EVERY 8 HOURS AS NEEDED FOR NAUSEA OR VOMITING (EMESIS)
     Route: 048
     Dates: start: 20240919

REACTIONS (3)
  - Drug intolerance [Unknown]
  - Myalgia [Recovering/Resolving]
  - Arthralgia [Recovering/Resolving]
